FAERS Safety Report 15386324 (Version 1)
Quarter: 2018Q3

REPORT INFORMATION
  Report Type: Spontaneous
  Country: IT (occurrence: IT)
  Receive Date: 20180914
  Receipt Date: 20180914
  Transmission Date: 20181010
  Serious: Yes (Hospitalization)
  Sender: FDA-Public Use
  Company Number: IT-BAUSCH-BL-2018-025157

PATIENT
  Age: 67 Year
  Sex: Male
  Weight: 75 kg

DRUGS (2)
  1. MELEVODOPA HYDROCHLORIDE [Concomitant]
     Indication: PARKINSONISM
     Route: 048
     Dates: start: 20180621
  2. SELEGILINE [Suspect]
     Active Substance: SELEGILINE
     Indication: PARKINSONISM
     Route: 048
     Dates: start: 20180621

REACTIONS (3)
  - Presyncope [Recovering/Resolving]
  - Cold sweat [Recovering/Resolving]
  - Hypotension [Recovering/Resolving]

NARRATIVE: CASE EVENT DATE: 20180805
